FAERS Safety Report 4320966-8 (Version None)
Quarter: 2004Q1

REPORT INFORMATION
  Report Type: 
  Country: None (occurrence: None)
  Receive Date: 20040318
  Receipt Date: 20040304
  Transmission Date: 20041129
  Serious: Yes (Death)
  Sender: FDA-Public Use
  Company Number: 2004S1000033

PATIENT
  Age: 37 Year
  Sex: Female

DRUGS (1)
  1. CLOZAPINE [Suspect]
     Dosage: 100 MG BID AND 200MG Q HS, ORAL
     Route: 048
     Dates: start: 20030203

REACTIONS (2)
  - BREAST CANCER [None]
  - METASTASES TO BONE [None]
